FAERS Safety Report 16769630 (Version 1)
Quarter: 2019Q3

REPORT INFORMATION
  Report Type: Spontaneous
  Country: CN (occurrence: CN)
  Receive Date: 20190903
  Receipt Date: 20190903
  Transmission Date: 20191005
  Serious: Yes (Other)
  Sender: FDA-Public Use
  Company Number: CN-BAXTER-2019BAX017116

PATIENT
  Age: 57 Year
  Sex: Female
  Weight: 53 kg

DRUGS (3)
  1. ENDOXAN [Suspect]
     Active Substance: CYCLOPHOSPHAMIDE
     Indication: SJOGREN^S SYNDROME
     Route: 041
     Dates: start: 20190715, end: 20190715
  2. SIPIRENUO [Suspect]
     Active Substance: ITRACONAZOLE
     Indication: SJOGREN^S SYNDROME
     Route: 048
     Dates: start: 20190713, end: 20190725
  3. SULFAMETHOXAZOLE [Suspect]
     Active Substance: SULFAMETHOXAZOLE
     Indication: SJOGREN^S SYNDROME
     Dosage: TABLET
     Route: 048
     Dates: start: 20190713, end: 20190723

REACTIONS (1)
  - Electrolyte imbalance [Recovered/Resolved]

NARRATIVE: CASE EVENT DATE: 20190721
